FAERS Safety Report 8136479-1 (Version None)
Quarter: 2012Q1

REPORT INFORMATION
  Report Type: 
  Country: None (occurrence: None)
  Receive Date: 20120214
  Receipt Date: 20120213
  Transmission Date: 20120608
  Serious: Yes (Hospitalization)
  Sender: FDA-Public Use
  Company Number: DE-AMGEN-DEUSP2012009314

PATIENT
  Sex: Male

DRUGS (6)
  1. IFOSFAMIDE [Concomitant]
     Indication: TESTIS CANCER
  2. BLEOMYCIN [Concomitant]
     Indication: TESTIS CANCER
  3. CISPLATIN [Concomitant]
     Indication: TESTIS CANCER
  4. ETOPOSIDE [Concomitant]
     Indication: TESTIS CANCER
  5. PACLITAXEL [Concomitant]
     Indication: TESTIS CANCER
  6. NEULASTA [Suspect]
     Indication: CHEMOTHERAPY

REACTIONS (2)
  - DRUG INEFFECTIVE [None]
  - NEUTROPENIA [None]
